FAERS Safety Report 4717716-X (Version None)
Quarter: 2005Q3

REPORT INFORMATION
  Report Type: 
  Country: None (occurrence: None)
  Receive Date: 20050715
  Receipt Date: 20050707
  Transmission Date: 20060218
  Serious: Yes (Hospitalization, Other)
  Sender: FDA-Public Use
  Company Number: USA-2002-0000701

PATIENT
  Age: 46 Year
  Sex: Male

DRUGS (7)
  1. OXYCONTIN [Suspect]
     Indication: PAIN
     Dosage: SEE IMAGE, ORAL
     Route: 048
     Dates: start: 19990101, end: 20010101
  2. OXYCONTIN [Suspect]
     Indication: PAIN
     Dosage: SEE IMAGE, ORAL
     Route: 048
     Dates: start: 19990528
  3. OXYCODONE HCL [Concomitant]
  4. SOMA [Concomitant]
  5. ANAPROX [Concomitant]
  6. AMBIEN [Concomitant]
  7. ELAVIL [Concomitant]

REACTIONS (17)
  - BRONCHITIS [None]
  - CONDITION AGGRAVATED [None]
  - DRUG ABUSER [None]
  - DRUG DEPENDENCE [None]
  - DRUG WITHDRAWAL SYNDROME [None]
  - FATIGUE [None]
  - HYPOAESTHESIA [None]
  - INSOMNIA [None]
  - MALAISE [None]
  - MYALGIA [None]
  - PAIN [None]
  - PAIN IN EXTREMITY [None]
  - PARAESTHESIA [None]
  - SOMNOLENCE [None]
  - SUICIDAL IDEATION [None]
  - TINEA CAPITIS [None]
  - UPPER RESPIRATORY TRACT INFECTION [None]
